FAERS Safety Report 4483656-7 (Version None)
Quarter: 2004Q4

REPORT INFORMATION
  Report Type: 
  Country: None (occurrence: None)
  Receive Date: 20041021
  Receipt Date: 20041005
  Transmission Date: 20050328
  Serious: Yes (Hospitalization)
  Sender: FDA-Public Use
  Company Number: 195781

PATIENT
  Age: 46 Year
  Sex: Female

DRUGS (9)
  1. AVONEX [Suspect]
     Indication: MULTIPLE SCLEROSIS
     Dosage: 30 MCG QW IM
     Route: 030
     Dates: start: 19981112
  2. AVONEX [Suspect]
     Indication: MULTIPLE SCLEROSIS
     Dosage: 15  MCG QW IM
     Route: 030
     Dates: start: 20040501
  3. RITALIN [Concomitant]
  4. WELLBUTRIN [Concomitant]
  5. REMERON [Concomitant]
  6. THYROXIN [Concomitant]
  7. COMBIPATCH [Concomitant]
  8. CELEXA [Concomitant]
  9. XANAX [Concomitant]

REACTIONS (2)
  - LIVER FUNCTION TEST ABNORMAL [None]
  - THROMBOSIS [None]
